FAERS Safety Report 8070170-5 (Version None)
Quarter: 2012Q1

REPORT INFORMATION
  Report Type: 
  Country: None (occurrence: None)
  Receive Date: 20120125
  Receipt Date: 20111201
  Transmission Date: 20120608
  Serious: Yes (Other)
  Sender: FDA-Public Use
  Company Number: ES-ROCHE-1012667

PATIENT
  Age: 32 Year
  Sex: Female
  Weight: 69 kg

DRUGS (5)
  1. XOLAIR [Suspect]
     Dosage: REGIMEN 2
  2. XOLAIR [Suspect]
     Indication: DERMATITIS ATOPIC
     Route: 058
  3. ANTIHISTAMINES (UNK INGREDIENTS) [Concomitant]
  4. METHOTREXATE [Concomitant]
  5. STEROIDS NOS [Concomitant]

REACTIONS (2)
  - ECZEMA HERPETICUM [None]
  - DRUG INEFFECTIVE [None]
